FAERS Safety Report 8990412 (Version 2)
Quarter: 2013Q1

REPORT INFORMATION
  Report Type: Spontaneous
  Country: US (occurrence: US)
  Receive Date: 20121228
  Receipt Date: 20130219
  Transmission Date: 20140127
  Serious: Yes (Other)
  Sender: FDA-Public Use
  Company Number: US-BAYER-2012-135100

PATIENT
  Age: 23 Year
  Sex: Female

DRUGS (3)
  1. MIRENA [Suspect]
     Indication: CONTRACEPTION
     Dosage: 20 MCG/24HR, CONT
     Route: 015
     Dates: start: 20121106, end: 20121206
  2. MIRENA [Suspect]
     Indication: MENORRHAGIA
  3. ANALGESICS [Concomitant]
     Dosage: 2 DAYS

REACTIONS (8)
  - Device dislocation [None]
  - Procedural pain [None]
  - Genital haemorrhage [None]
  - Abdominal pain lower [None]
  - Injury [None]
  - Emotional distress [None]
  - Pain [None]
  - Abdominal pain [None]
